FAERS Safety Report 14129236 (Version 1)
Quarter: 2017Q4

REPORT INFORMATION
  Report Type: Report from Study
  Country: BR (occurrence: BR)
  Receive Date: 20171026
  Receipt Date: 20171026
  Transmission Date: 20180321
  Serious: Yes (Other)
  Sender: FDA-Public Use
  Company Number: PHHY2017BR155238

PATIENT
  Age: 90 Year
  Sex: Female

DRUGS (2)
  1. EXELON PATCH [Suspect]
     Active Substance: RIVASTIGMINE
     Indication: PRODUCT USED FOR UNKNOWN INDICATION
     Route: 062
  2. SUSTAGEN [Concomitant]
     Indication: NUTRITIONAL SUPPLEMENTATION
     Route: 065

REACTIONS (8)
  - Mental impairment [Unknown]
  - Hypophagia [Unknown]
  - Dementia [Unknown]
  - Memory impairment [Unknown]
  - Cough [Unknown]
  - Gait disturbance [Unknown]
  - Speech disorder [Unknown]
  - Choking [Unknown]
